FAERS Safety Report 13367046 (Version 1)
Quarter: 2017Q1

REPORT INFORMATION
  Report Type: Spontaneous
  Country: JP (occurrence: JP)
  Receive Date: 20170324
  Receipt Date: 20170324
  Transmission Date: 20170429
  Serious: Yes (Other)
  Sender: FDA-Public Use
  Company Number: JP-ROCHE-1908013

PATIENT
  Age: 80 Year
  Sex: Male
  Weight: 61 kg

DRUGS (5)
  1. TAMIFLU [Suspect]
     Active Substance: OSELTAMIVIR PHOSPHATE
     Indication: INFLUENZA
     Dosage: DOSAGE IS UNCERTAIN.
     Route: 048
     Dates: start: 20170214, end: 20170215
  2. MAINTATE [Concomitant]
     Active Substance: BISOPROLOL FUMARATE
     Dosage: AMOUNT OF 1 ONCE ADMINISTRATION: 2.5 (UNIT UNCERTAINTY)
     Route: 065
  3. PLETAAL [Concomitant]
     Active Substance: CILOSTAZOL
     Dosage: AMOUNT OF 1 ONCE ADMINISTRATION: 100 (UNIT UNCERTAINTY)
     Route: 048
  4. CRESTOR [Concomitant]
     Active Substance: ROSUVASTATIN CALCIUM
     Dosage: AMOUNT OF 1 ONCE ADMINISTRATION: 5 (UNIT UNCERTAINTY)
     Route: 065
  5. AMLODIPINE [Concomitant]
     Active Substance: AMLODIPINE BESYLATE
     Dosage: AMOUNT OF 1 ONCE ADMINISTRATION: 5 (UNIT UNCERTAINTY)
     Route: 048

REACTIONS (5)
  - Gastrointestinal disorder [Recovered/Resolved]
  - Urinary incontinence [Recovered/Resolved]
  - Depressed level of consciousness [Recovered/Resolved]
  - Anal incontinence [Recovered/Resolved]
  - Fall [Unknown]

NARRATIVE: CASE EVENT DATE: 20170214
